FAERS Safety Report 7128536-3 (Version None)
Quarter: 2010Q4

REPORT INFORMATION
  Report Type: 
  Country: None (occurrence: None)
  Receive Date: 20101130
  Receipt Date: 20101119
  Transmission Date: 20110411
  Serious: No
  Sender: FDA-Public Use
  Company Number: US-JNJFOC-20101107587

PATIENT
  Sex: Female

DRUGS (7)
  1. FENTANYL-100 [Suspect]
     Indication: SPINAL FRACTURE
     Dosage: NDC #: 0781-7243-55
     Route: 062
  2. VALIUM [Concomitant]
     Indication: SLEEP DISORDER
     Route: 048
  3. PREDNISONE [Concomitant]
     Indication: BACK PAIN
     Dosage: STOP DATE: NOV-2010
     Route: 048
  4. PREDNISONE [Concomitant]
     Route: 048
  5. GABAPENTIN [Concomitant]
     Indication: BACK PAIN
     Dosage: 600 MG HALF TABLET EVERY 8 HOURS
     Route: 048
  6. UNKNOWN MEDICATION [Concomitant]
     Indication: BACK PAIN
     Route: 037
  7. ESTRADIOL [Concomitant]
     Indication: NUTRITIONAL SUPPORT
     Route: 048

REACTIONS (2)
  - PRODUCT ADHESION ISSUE [None]
  - WRONG TECHNIQUE IN DRUG USAGE PROCESS [None]
